FAERS Safety Report 4748526-5 (Version None)
Quarter: 2005Q3

REPORT INFORMATION
  Report Type: 
  Country: None (occurrence: None)
  Receive Date: 20050818
  Receipt Date: 20050807
  Transmission Date: 20060218
  Serious: Yes (Other)
  Sender: FDA-Public Use
  Company Number: 2005111590

PATIENT
  Age: 30 Year
  Sex: Male
  Weight: 70.3075 kg

DRUGS (1)
  1. LISTERINE ANTISEPTIC MOUTHWASH (MENTHOL,METHYL SALICYLATE,EUCALYPTOL,T [Suspect]
     Indication: DENTAL DISORDER PROPHYLAXIS
     Dosage: 1 MOUTHFUL ONCE, ORAL
     Route: 048
     Dates: start: 20050805, end: 20050805

REACTIONS (5)
  - APHASIA [None]
  - OEDEMA MOUTH [None]
  - ORAL INTAKE REDUCED [None]
  - ORAL MUCOSAL BLISTERING [None]
  - TONGUE BLISTERING [None]
